FAERS Safety Report 7962731 (Version 9)
Quarter: 2015Q1

REPORT INFORMATION
  Report Type: Report from Study
  Country: DE (occurrence: DE)
  Receive Date: 20110526
  Receipt Date: 20150228
  Transmission Date: 20150721
  Serious: Yes (Death, Hospitalization, Other)
  Sender: FDA-Public Use
  Company Number: DE-UCBSA-024569

PATIENT
  Age: 71 Year
  Sex: Female
  Weight: 67 kg

DRUGS (22)
  1. CALCICARE D3 [Concomitant]
     Indication: OSTEOPOROSIS
     Dosage: 600/400 MG/IU
     Route: 048
     Dates: start: 200909, end: 20110202
  2. ASPIRIN. [Concomitant]
     Active Substance: ASPIRIN
     Indication: ARTERIOSCLEROSIS
     Dosage: 100 MG, ONCE DAILY (QD)
     Route: 048
     Dates: start: 2009, end: 20110202
  3. MERONEM [Concomitant]
     Active Substance: MEROPENEM
     Indication: RESPIRATORY FAILURE
     Dates: start: 201101, end: 201101
  4. PREDNI HEXAL [Concomitant]
     Dosage: 10 MG IN THE MORNING AND 5 MG IN THE EVENING
     Dates: start: 20100906, end: 20110201
  5. ARCOXIA [Concomitant]
     Active Substance: ETORICOXIB
     Indication: RHEUMATOID ARTHRITIS
     Dosage: FREQ.:BQ
     Route: 048
     Dates: start: 20100906, end: 20110202
  6. PREDNI HEXAL [Concomitant]
     Dosage: ONCE IN THE MORNING
     Dates: start: 20100527, end: 20100905
  7. SIMVASTATIN. [Concomitant]
     Active Substance: SIMVASTATIN
     Indication: HYPERLIPIDAEMIA
     Dosage: 40 MG 1X1/2
     Route: 048
     Dates: start: 201005, end: 20110202
  8. CATECHOLAMINE [Concomitant]
     Indication: CARDIOVASCULAR DISORDER
     Dates: start: 201101, end: 201101
  9. AMLODIPINE [Concomitant]
     Active Substance: AMLODIPINE BESYLATE
     Indication: HYPERTENSION
     Dosage: 5 MG, ONCE DAILY (QD)
     Route: 048
     Dates: start: 201005, end: 20110202
  10. KLACID [Concomitant]
     Active Substance: CLARITHROMYCIN
     Indication: RESPIRATORY FAILURE
     Dates: start: 201101, end: 201101
  11. PREDNI HEXAL [Concomitant]
     Indication: RHEUMATOID ARTHRITIS
     Dosage: 10 MG, ONCE DAILY (QD)
     Dates: start: 20091216, end: 20100302
  12. TAZOBAC [Concomitant]
     Active Substance: PIPERACILLIN SODIUM\TAZOBACTAM SODIUM
     Indication: RESPIRATORY FAILURE
     Dates: start: 201101, end: 201101
  13. AVALOX [Concomitant]
     Active Substance: MOXIFLOXACIN HYDROCHLORIDE
     Indication: SEPSIS
     Dates: start: 201101, end: 201101
  14. PREDNISOLONE. [Concomitant]
     Active Substance: PREDNISOLONE
     Indication: RHEUMATOID ARTHRITIS
     Dosage: 2.5 MG, ONCE DAILY (QD)
     Route: 048
     Dates: start: 20090906
  15. ALENDRONIC ACID [Concomitant]
     Active Substance: ALENDRONIC ACID
     Indication: OSTEOPOROSIS
     Dosage: 70 MG, WEEKLY (QW)
     Route: 048
     Dates: start: 20100906, end: 20110202
  16. PREDNI HEXAL [Concomitant]
     Dosage: 1/2 ONCE IN THE MORNING
     Dates: start: 20100303, end: 20100526
  17. ARAVA [Concomitant]
     Active Substance: LEFLUNOMIDE
     Indication: RHEUMATOID ARTHRITIS
     Dosage: 20 MG, ONCE DAILY (QD)
     Route: 048
     Dates: start: 200909, end: 20110202
  18. ELECTROLYTE [Concomitant]
     Active Substance: UNSPECIFIED INGREDIENT
     Indication: DEHYDRATION
     Dates: start: 201101, end: 201101
  19. CERTOLIZUMAB PEGOL RA [Suspect]
     Active Substance: CERTOLIZUMAB PEGOL
     Indication: RHEUMATOID ARTHRITIS
     Dosage: 200 MG, EV 2 WEEKS(QOW)
     Route: 058
     Dates: start: 20100920, end: 20101215
  20. PREDNISOLONE. [Concomitant]
     Active Substance: PREDNISOLONE
     Indication: RESPIRATORY FAILURE
     Dosage: DOSE: 100 -10 MG ONCE DAILY
     Dates: start: 201101, end: 201101
  21. OMEPRAZOLE. [Concomitant]
     Active Substance: OMEPRAZOLE
     Indication: PROPHYLAXIS
     Dosage: 40 MG, ONCE DAILY (QD)
     Route: 048
     Dates: start: 200909, end: 20110202
  22. MICARDIS [Concomitant]
     Active Substance: TELMISARTAN
     Indication: HYPERTENSION
     Dosage: 80 MG, ONCE DAILY (QD)
     Route: 048
     Dates: start: 201005, end: 20110202

REACTIONS (5)
  - Cardiac failure [Not Recovered/Not Resolved]
  - Sepsis [Fatal]
  - Gastrointestinal viral infection [Recovered/Resolved]
  - Dermatitis psoriasiform [Not Recovered/Not Resolved]
  - Ventricular fibrillation [Recovered/Resolved]

NARRATIVE: CASE EVENT DATE: 20101201
